FAERS Safety Report 7190928-4 (Version None)
Quarter: 2010Q4

REPORT INFORMATION
  Report Type: 
  Country: None (occurrence: None)
  Receive Date: 20101223
  Receipt Date: 20101220
  Transmission Date: 20110411
  Serious: Yes (Hospitalization, Other)
  Sender: FDA-Public Use
  Company Number: US-TEVA-260509USA

PATIENT
  Age: 43 Year
  Sex: Female

DRUGS (4)
  1. PHENYTOIN SODIUM [Suspect]
  2. ESCITALOPRAM OXALATE [Concomitant]
  3. LEVETIRACETAM [Concomitant]
  4. IBUPROFEN [Concomitant]

REACTIONS (1)
  - DRUG RASH WITH EOSINOPHILIA AND SYSTEMIC SYMPTOMS [None]
